FAERS Safety Report 9441539 (Version 1)
Quarter: 2013Q3

REPORT INFORMATION
  Report Type: Report from Study
  Country: GB (occurrence: GB)
  Receive Date: 20130805
  Receipt Date: 20130805
  Transmission Date: 20140515
  Serious: Yes (Hospitalization)
  Sender: FDA-Public Use
  Company Number: GB-ROCHE-1256910

PATIENT
  Sex: Male

DRUGS (1)
  1. RITUXIMAB [Suspect]
     Indication: RHEUMATOID ARTHRITIS
     Dosage: DATE OF LAST DOSE PRIOR TO SERIOUS ADVERSE EVENT 07/JUL/2011.
     Route: 065
     Dates: start: 20110623

REACTIONS (2)
  - Haematuria [Unknown]
  - Bladder neoplasm [Unknown]
